FAERS Safety Report 21765832 (Version 8)
Quarter: 2023Q2

REPORT INFORMATION
  Report Type: Spontaneous
  Country: CA (occurrence: CA)
  Receive Date: 20221222
  Receipt Date: 20230607
  Transmission Date: 20230721
  Serious: Yes (Other)
  Sender: FDA-Public Use
  Company Number: CA-PFIZER INC-202200777960

PATIENT
  Age: 54 Year
  Sex: Female

DRUGS (2)
  1. ABRILADA [Suspect]
     Active Substance: ADALIMUMAB-AFZB
     Indication: Crohn^s disease
     Dosage: 1 DF 160MG WEEK 0, 80MG WEEKS 2, THEN MG Q 2 WEEKS (PREFILLED PEN)
     Route: 058
     Dates: start: 20220610
  2. ABRILADA [Suspect]
     Active Substance: ADALIMUMAB-AFZB
     Dosage: 1 DF, 160MG WEEK 0, 80MG WEEKS 2, THEN MG Q 2 WEEKS
     Route: 058

REACTIONS (4)
  - Sinusitis [Unknown]
  - Bronchitis [Unknown]
  - Diarrhoea [Unknown]
  - Needle issue [Unknown]

NARRATIVE: CASE EVENT DATE: 20221201
